FAERS Safety Report 9403790 (Version 1)
Quarter: 2013Q3

REPORT INFORMATION
  Report Type: Spontaneous
  Country: PT (occurrence: None)
  Receive Date: 20130712
  Receipt Date: 20130712
  Transmission Date: 20140515
  Serious: Yes (Other)
  Sender: FDA-Public Use
  Company Number: 2135225-2013-00083

PATIENT
  Age: 41 Year
  Sex: Female

DRUGS (1)
  1. AETHOXYSKLEROL [Suspect]
     Indication: VARICOSE VEIN
     Route: 042
     Dates: start: 20130316

REACTIONS (2)
  - Injection site inflammation [None]
  - Injection site necrosis [None]
